FAERS Safety Report 7762225-7 (Version None)
Quarter: 2011Q3

REPORT INFORMATION
  Report Type: 
  Country: None (occurrence: None)
  Receive Date: 20110920
  Receipt Date: 20110916
  Transmission Date: 20111222
  Serious: Yes (Hospitalization)
  Sender: FDA-Public Use
  Company Number: FR-PFIZER INC-2011219329

PATIENT
  Age: 60 Year
  Sex: Male

DRUGS (14)
  1. EFFIENT [Suspect]
     Indication: MYOCARDIAL INFARCTION
     Dosage: 6 DF, SINGLE
     Route: 048
     Dates: start: 20110720
  2. PRIMPERAN TAB [Concomitant]
  3. NEXIUM [Suspect]
     Indication: MYOCARDIAL INFARCTION
     Dosage: UNK
     Route: 048
     Dates: start: 20110720, end: 20110728
  4. EFFIENT [Suspect]
     Dosage: 1 DF, 1X/DAY
     Route: 048
     Dates: end: 20110728
  5. REOPRO [Concomitant]
  6. ARIXTRA [Suspect]
     Indication: MYOCARDIAL INFARCTION
     Dosage: 2.5 MG, 1X/DAY
     Route: 058
     Dates: start: 20110720, end: 20110727
  7. PLAVIX [Concomitant]
  8. ASPIRIN [Concomitant]
  9. ISOPTIN [Concomitant]
  10. PERINDOPRIL [Suspect]
     Indication: MYOCARDIAL INFARCTION
     Dosage: UNK
     Route: 048
     Dates: start: 20110722, end: 20110728
  11. METOPROLOL TARTRATE [Suspect]
     Indication: MYOCARDIAL INFARCTION
     Dosage: UNK
     Dates: start: 20110720, end: 20110728
  12. ISOSORBIDE DINITRATE [Concomitant]
  13. ATORVASTATIN CALCIUM [Suspect]
     Indication: MYOCARDIAL INFARCTION
     Dosage: 80 MG, UNK
     Route: 048
     Dates: start: 20110720, end: 20110728
  14. ATROPINE [Concomitant]

REACTIONS (1)
  - THROMBOCYTOPENIA [None]
